FAERS Safety Report 9342241 (Version 1)
Quarter: 2013Q2

REPORT INFORMATION
  Report Type: Spontaneous
  Country: NL (occurrence: NL)
  Receive Date: 20130611
  Receipt Date: 20130611
  Transmission Date: 20140414
  Serious: Yes (Other)
  Sender: FDA-Public Use
  Company Number: NL-ASTRAZENECA-2013SE41212

PATIENT
  Sex: 0

DRUGS (1)
  1. NEXIUM [Suspect]
     Route: 048

REACTIONS (8)
  - Aphasia [Unknown]
  - Pyrexia [Unknown]
  - Neck pain [Unknown]
  - Urticaria [Unknown]
  - Erythema [Unknown]
  - Myalgia [Unknown]
  - Headache [Unknown]
  - Confusional state [Unknown]
